FAERS Safety Report 9602113 (Version 1)
Quarter: 2013Q4

REPORT INFORMATION
  Report Type: Spontaneous
  Country: FR (occurrence: FR)
  Receive Date: 20131007
  Receipt Date: 20131007
  Transmission Date: 20140711
  Serious: Yes (Death)
  Sender: FDA-Public Use
  Company Number: FR-SA-2013SA097723

PATIENT
  Age: 76 Year
  Sex: Female

DRUGS (4)
  1. LOVENOX [Suspect]
     Indication: PRODUCT USED FOR UNKNOWN INDICATION
     Route: 065
     Dates: start: 201308, end: 20130827
  2. ROCEPHINE [Concomitant]
  3. FLAGYL [Concomitant]
  4. VIT K ANTAGONISTS [Concomitant]

REACTIONS (1)
  - Heparin-induced thrombocytopenia [Fatal]
